FAERS Safety Report 25259942 (Version 1)
Quarter: 2025Q2

REPORT INFORMATION
  Report Type: Spontaneous
  Country: US (occurrence: None)
  Receive Date: 20250430
  Receipt Date: 20250430
  Transmission Date: 20250717
  Serious: Yes (Other)
  Sender: FDA-CTU
  Company Number: None

PATIENT
  Age: 35 Year
  Sex: Female
  Weight: 54.45 kg

DRUGS (2)
  1. DECADRON [Suspect]
     Active Substance: DEXAMETHASONE
     Indication: Oropharyngeal pain
     Route: 048
     Dates: start: 20250422, end: 20250422
  2. IRON [Concomitant]
     Active Substance: IRON

REACTIONS (2)
  - Oropharyngeal pain [None]
  - Epistaxis [None]

NARRATIVE: CASE EVENT DATE: 20250422
